FAERS Safety Report 12210538 (Version 1)
Quarter: 2016Q1

REPORT INFORMATION
  Report Type: Report from Study
  Country: US (occurrence: US)
  Receive Date: 20160325
  Receipt Date: 20160325
  Transmission Date: 20160526
  Serious: No
  Sender: FDA-Public Use
  Company Number: US-AMGEN-USASL2016036636

PATIENT
  Age: 81 Year
  Sex: Female

DRUGS (1)
  1. ENBREL [Suspect]
     Active Substance: ETANERCEPT
     Indication: PSORIASIS
     Dosage: UNK UNK, QWK
     Route: 065
     Dates: start: 20140721

REACTIONS (5)
  - Unevaluable event [Unknown]
  - Back pain [Unknown]
  - Psoriasis [Unknown]
  - Back disorder [Unknown]
  - Accident [Unknown]
